FAERS Safety Report 23494747 (Version 1)
Quarter: 2024Q1

REPORT INFORMATION
  Report Type: Spontaneous
  Country: US (occurrence: None)
  Receive Date: 20240206
  Receipt Date: 20240206
  Transmission Date: 20240410
  Serious: Yes (Hospitalization)
  Sender: FDA-Public Use
  Company Number: None

PATIENT
  Age: 77 Year
  Sex: Female
  Weight: 54 kg

DRUGS (6)
  1. PROLIA [Suspect]
     Active Substance: DENOSUMAB
     Indication: Osteoporosis
     Dosage: OTHER FREQUENCY : EVERY 6 MONTHS;?
     Route: 058
     Dates: start: 20211213, end: 20230905
  2. ALLOPURINOL [Concomitant]
     Active Substance: ALLOPURINOL
     Dates: start: 20150815
  3. ELIQUIS [Concomitant]
     Active Substance: APIXABAN
     Dates: start: 20220104, end: 20220104
  4. MELATONIN [Concomitant]
     Active Substance: MELATONIN
     Dates: start: 20220110, end: 20221008
  5. VITAMINS [Concomitant]
     Active Substance: VITAMINS
     Dates: start: 20220110, end: 20221008
  6. SODIUM BICARBONATE [Concomitant]
     Active Substance: SODIUM BICARBONATE
     Dates: start: 20200318, end: 20221007

REACTIONS (4)
  - Hypocalcaemia [None]
  - Muscle twitching [None]
  - Altered state of consciousness [None]
  - Blood sodium decreased [None]

NARRATIVE: CASE EVENT DATE: 20221003
